FAERS Safety Report 25764215 (Version 1)
Quarter: 2025Q3

REPORT INFORMATION
  Report Type: Spontaneous
  Country: US (occurrence: US)
  Receive Date: 20250905
  Receipt Date: 20250905
  Transmission Date: 20251021
  Serious: No
  Sender: DOMPE FARMACEUTICI
  Company Number: US-FARMAPROD-202412-4219

PATIENT
  Sex: Female

DRUGS (17)
  1. OXERVATE [Suspect]
     Active Substance: CENEGERMIN-BKBJ
     Indication: Neurotrophic keratopathy
     Route: 047
     Dates: start: 20241211
  2. OXERVATE [Suspect]
     Active Substance: CENEGERMIN-BKBJ
  3. VALACYCLOVIR [Concomitant]
     Active Substance: VALACYCLOVIR HYDROCHLORIDE
  4. XELJANZ XR [Concomitant]
     Active Substance: TOFACITINIB CITRATE
  5. QULIPTA [Concomitant]
     Active Substance: ATOGEPANT
  6. DEXILANT [Concomitant]
     Active Substance: DEXLANSOPRAZOLE
  7. MIGERGOT [Concomitant]
     Active Substance: CAFFEINE\ERGOTAMINE TARTRATE
     Route: 054
  8. VITAMIN D3 [Concomitant]
     Active Substance: CHOLECALCIFEROL
  9. VAGIFEM [Concomitant]
     Active Substance: ESTRADIOL
  10. REFRESH LIQUIGEL [Concomitant]
     Active Substance: CARBOXYMETHYLCELLULOSE SODIUM
  11. THERACRAN [Concomitant]
  12. VITAMIN C [Concomitant]
     Active Substance: ASCORBIC ACID
  13. OMEGA-3 ACIDS [Concomitant]
     Active Substance: OMEGA-3 FATTY ACIDS
  14. PEPCID [Concomitant]
     Active Substance: FAMOTIDINE
  15. BIOTIN [Concomitant]
     Active Substance: BIOTIN
  16. PREGABALIN [Concomitant]
     Active Substance: PREGABALIN
  17. IRON [Concomitant]
     Active Substance: IRON

REACTIONS (2)
  - Periorbital pain [Unknown]
  - Eyelid pain [Unknown]
